FAERS Safety Report 6936270-5 (Version None)
Quarter: 2010Q3

REPORT INFORMATION
  Report Type: 
  Country: None (occurrence: None)
  Receive Date: 20100818
  Receipt Date: 20100805
  Transmission Date: 20110219
  Serious: Yes (Other)
  Sender: FDA-Public Use
  Company Number: US-1182923

PATIENT
  Age: 83 Year
  Sex: Female
  Weight: 45.3597 kg

DRUGS (9)
  1. SYSTANE EYE DROPS [Suspect]
     Indication: DRY EYE
     Dosage: 1 GTT OU BID, OPHTHALMIC
     Route: 047
     Dates: start: 20100501, end: 20100701
  2. GENTEAL EYE DROPS (NOT SPECIFIED) [Suspect]
     Indication: DRY EYE
     Dosage: OPHTHALMIC
     Route: 047
     Dates: start: 20100701
  3. ZOCOR [Concomitant]
  4. LEVOXYL [Concomitant]
  5. FUROSEMIDE [Concomitant]
  6. METOPROLOL [Concomitant]
  7. ASPIRIN [Concomitant]
  8. SPIRONOLACTONE [Concomitant]
  9. DARVOCET [Concomitant]

REACTIONS (1)
  - HALLUCINATION [None]
